FAERS Safety Report 9356530 (Version 6)
Quarter: 2014Q2

REPORT INFORMATION
  Report Type: Spontaneous
  Country: JP (occurrence: None)
  Receive Date: 20130614
  Receipt Date: 20140630
  Transmission Date: 20141212
  Serious: Yes (Hospitalization, Other)
  Sender: FDA-Public Use
  Company Number: SYM-2013-04747

PATIENT
  Age: 58 Year
  Sex: Male
  Weight: 46 kg

DRUGS (12)
  1. CHOREAZINE (TERTRABENAZINE) (12.5 MILLIGRAM, TABLET) (TETRABENAZINE) [Suspect]
     Indication: HUNTINGTON^S DISEASE
     Route: 048
     Dates: start: 20130523, end: 20130709
  2. SERENACE (HALOPERIDOL (HALOPERIDOL) [Concomitant]
  3. DANTRIUM (DANTROLENE SODIUM) (DANTROLENE SODIUM)? [Concomitant]
  4. PAXIL (PAROXETINE HYDROCHLORIDE) (PAROXETINE HYDROCHLORIDE) [Concomitant]
  5. ZOPICLONE (ZOPICLONE) [Concomitant]
  6. SENNOSIDE A+B (SENNOSIDE A+B) [Concomitant]
  7. RISPERDAL [Concomitant]
  8. MAGLAX (MAGNESIUM OXIDE) (MAGNESIUM OXIDE) [Concomitant]
  9. RISUMIC (AMEZINIUM METILSULFATE) (AMEZINIUM METILSULFATE) [Concomitant]
  10. HALCION (TRIAZOLAM) (TRIAZOLAM) [Concomitant]
  11. OMEPRAL (OMEPRAZOLE) (OMEPRAZOLE) [Concomitant]
  12. REBAMIPIDE (REBAMIPIDE) (REBAMIPIDE) [Concomitant]

REACTIONS (2)
  - Epilepsy [None]
  - Muscle spasms [None]
